FAERS Safety Report 18196096 (Version 1)
Quarter: 2020Q3

REPORT INFORMATION
  Report Type: Spontaneous
  Country: CA (occurrence: CA)
  Receive Date: 20200825
  Receipt Date: 20200825
  Transmission Date: 20201103
  Serious: Yes (Hospitalization)
  Sender: FDA-Public Use
  Company Number: CA-TEVA-2020-CA-1817549

PATIENT
  Age: 33 Year
  Sex: Female

DRUGS (11)
  1. HUMIRA [Suspect]
     Active Substance: ADALIMUMAB
     Indication: PRODUCT USED FOR UNKNOWN INDICATION
     Route: 058
  2. PENICILLIN G [Suspect]
     Active Substance: PENICILLIN G
     Indication: PRODUCT USED FOR UNKNOWN INDICATION
     Route: 065
  3. TRAMADOL. [Concomitant]
     Active Substance: TRAMADOL
  4. NAPROXEN. [Suspect]
     Active Substance: NAPROXEN
     Indication: PRODUCT USED FOR UNKNOWN INDICATION
     Dosage: 1500 MILLIGRAM DAILY;
     Route: 065
  5. ENBREL [Suspect]
     Active Substance: ETANERCEPT
     Route: 065
  6. METHOTREXATE. [Suspect]
     Active Substance: METHOTREXATE
     Indication: PRODUCT USED FOR UNKNOWN INDICATION
     Route: 058
  7. ENBREL [Suspect]
     Active Substance: ETANERCEPT
     Indication: PRODUCT USED FOR UNKNOWN INDICATION
     Route: 065
  8. SYNTHROID [Concomitant]
     Active Substance: LEVOTHYROXINE SODIUM
  9. HYDROXYCHLOROQUINE SULFATE. [Concomitant]
     Active Substance: HYDROXYCHLOROQUINE SULFATE
  10. NAPROXEN. [Suspect]
     Active Substance: NAPROXEN
     Dosage: 1500 MILLIGRAM DAILY;
     Route: 065
  11. HYDROXYCHLOROQUINE [Suspect]
     Active Substance: HYDROXYCHLOROQUINE
     Indication: PRODUCT USED FOR UNKNOWN INDICATION
     Route: 065

REACTIONS (16)
  - Drug hypersensitivity [Unknown]
  - Fatigue [Unknown]
  - Synovitis [Unknown]
  - Thyroid disorder [Unknown]
  - Insomnia [Unknown]
  - Nausea [Unknown]
  - Dysbiosis [Unknown]
  - Infection [Unknown]
  - Maternal exposure during pregnancy [Unknown]
  - Psoriasis [Unknown]
  - Arthralgia [Unknown]
  - Pain [Unknown]
  - Anxiety [Unknown]
  - Inflammation [Unknown]
  - Rheumatoid factor positive [Unknown]
  - Drug ineffective [Unknown]
